FAERS Safety Report 17609968 (Version 1)
Quarter: 2020Q2

REPORT INFORMATION
  Report Type: Spontaneous
  Country: US (occurrence: US)
  Receive Date: 20200401
  Receipt Date: 20200401
  Transmission Date: 20200713
  Serious: Yes (Hospitalization, Other)
  Sender: FDA-Public Use
  Company Number: US-PFIZER INC-2020133834

PATIENT
  Age: 80 Year
  Sex: Male

DRUGS (1)
  1. VYNDAMAX [Suspect]
     Active Substance: TAFAMIDIS
     Indication: CARDIAC FAILURE CONGESTIVE
     Dosage: 61 MG, UNK

REACTIONS (5)
  - Left ventricular hypertrophy [Unknown]
  - Pleural effusion [Unknown]
  - Peripheral venous disease [Unknown]
  - Joint swelling [Unknown]
  - Pneumothorax [Unknown]

NARRATIVE: CASE EVENT DATE: 202001
